FAERS Safety Report 16705597 (Version 2)
Quarter: 2019Q3

REPORT INFORMATION
  Report Type: Report from Study
  Country: CO (occurrence: CO)
  Receive Date: 20190815
  Receipt Date: 20190903
  Transmission Date: 20191004
  Serious: Yes (Hospitalization, Other)
  Sender: FDA-Public Use
  Company Number: CO-ASTELLAS-2019US032810

PATIENT
  Age: 54 Year
  Sex: Male

DRUGS (17)
  1. ASPIRIN. [Concomitant]
     Active Substance: ASPIRIN
     Indication: BLOOD DISORDER
     Dosage: 100 MG, ONCE DAILY (AFTER LUNCH, SINCE ONE MONTH AGO)
     Route: 065
     Dates: start: 201907
  2. FUROSEMIDE. [Concomitant]
     Active Substance: FUROSEMIDE
     Indication: OEDEMA
     Route: 065
     Dates: start: 20190611
  3. TACROLIMUS. [Suspect]
     Active Substance: TACROLIMUS
     Indication: RENAL TRANSPLANT
     Dosage: 8 MG (1 CAPSULE OF 5MG AND 3 CAPSULES OF 1MG), ONCE DAILY
     Route: 048
     Dates: start: 20190611, end: 20190725
  4. PREDNISOLONE. [Concomitant]
     Active Substance: PREDNISOLONE
     Indication: RENAL DISORDER PROPHYLAXIS
     Route: 065
     Dates: start: 20190611
  5. AMLODIPINE [Concomitant]
     Active Substance: AMLODIPINE BESYLATE
     Indication: BLOOD PRESSURE ABNORMAL
     Route: 065
     Dates: start: 20190611
  6. ROSUVASTATIN. [Concomitant]
     Active Substance: ROSUVASTATIN
     Indication: BLOOD TRIGLYCERIDES ABNORMAL
     Dosage: 20 MG, ONCE DAILY (SINCE ONE YEAR AGO)
     Route: 065
     Dates: start: 2018
  7. CALCIUM CARBONATE. [Concomitant]
     Active Substance: CALCIUM CARBONATE
     Indication: MINERAL SUPPLEMENTATION
     Dosage: 600 MG, EVERY 12 HOURS (FOUR YEARS AGO)
     Route: 065
     Dates: start: 2015
  8. CARVEDILOL. [Concomitant]
     Active Substance: CARVEDILOL
     Indication: BLOOD PRESSURE ABNORMAL
     Route: 065
     Dates: start: 20190611
  9. CALCITRIOL. [Concomitant]
     Active Substance: CALCITRIOL
     Indication: PRODUCT USED FOR UNKNOWN INDICATION
     Dosage: 0.5 MG, ONCE DAILY (SINCE FOUR MONTHS AGO)
     Route: 065
     Dates: start: 201904
  10. MYCOPHENOLATE SODIUM [Concomitant]
     Active Substance: MYCOPHENOLATE SODIUM
     Indication: IMMUNOSUPPRESSION
     Route: 065
     Dates: start: 20190611
  11. PREDNISOLONE. [Concomitant]
     Active Substance: PREDNISOLONE
     Route: 065
     Dates: start: 201908
  12. NYSTATIN. [Concomitant]
     Active Substance: NYSTATIN
     Indication: ANTIFUNGAL PROPHYLAXIS
     Dosage: 5 CC AFTER EACH MEAL
     Route: 065
     Dates: start: 20190611
  13. CLONIDINE. [Concomitant]
     Active Substance: CLONIDINE
     Indication: BLOOD PRESSURE ABNORMAL
     Route: 065
     Dates: start: 20190611
  14. OMEPRAZOLE. [Concomitant]
     Active Substance: OMEPRAZOLE
     Indication: GASTRITIS
     Route: 065
     Dates: start: 20190611
  15. TACROLIMUS. [Suspect]
     Active Substance: TACROLIMUS
     Indication: RENAL TRANSPLANT
     Dosage: 4 MG (4 CAPSULES OF 1 MG), EVERY 12 HOURS
     Route: 048
     Dates: start: 20190726
  16. TRIMETOPRIM [Concomitant]
     Active Substance: TRIMETHOPRIM
     Indication: PRODUCT USED FOR UNKNOWN INDICATION
     Dosage: 160 MG, UNKNOWN FREQ. (TAKING ON TUESDAYS, THURSDAYS AND SATURDAYS)
     Route: 065
     Dates: start: 20190611
  17. APIDRA [Concomitant]
     Active Substance: INSULIN GLULISINE
     Indication: DIABETES MELLITUS
     Dosage: BY INFUSION PUMP 260 UNITS IN 3 DAYS OR SOMETIMES LESS DEPENDS ON RESULT OF SUGAR
     Route: 065
     Dates: start: 2016

REACTIONS (2)
  - Kidney enlargement [Recovering/Resolving]
  - Urinary retention [Recovering/Resolving]

NARRATIVE: CASE EVENT DATE: 20190807
